FAERS Safety Report 8031052-8 (Version None)
Quarter: 2011Q4

REPORT INFORMATION
  Report Type: 
  Country: None (occurrence: None)
  Receive Date: 20111202
  Receipt Date: 20090803
  Transmission Date: 20120403
  Serious: Yes (Hospitalization)
  Sender: FDA-Public Use
  Company Number: 2009SP017663

PATIENT
  Age: 27 Year
  Sex: Female
  Weight: 72.5755 kg

DRUGS (4)
  1. ONEA A DAY WOMEN'S MULTIVITAMINS [Concomitant]
  2. ,, [Concomitant]
  3. NUVARING [Suspect]
     Indication: CONTRACEPTION
     Dosage: 1 DF; QM;
     Dates: start: 20020801, end: 20061001
  4. MACROBID [Concomitant]

REACTIONS (7)
  - VAGINAL DISCHARGE [None]
  - DEEP VEIN THROMBOSIS [None]
  - FUNGAL INFECTION [None]
  - FOLLICULITIS [None]
  - URINARY TRACT INFECTION FUNGAL [None]
  - EAR INFECTION FUNGAL [None]
  - CALCULUS URINARY [None]
